FAERS Safety Report 20209517 (Version 1)
Quarter: 2021Q4

REPORT INFORMATION
  Report Type: Spontaneous
  Country: US (occurrence: US)
  Receive Date: 20211221
  Receipt Date: 20211221
  Transmission Date: 20220303
  Serious: Yes (Other)
  Sender: FDA-Public Use
  Company Number: US-NOVARTISPH-NVSC2021US288950

PATIENT
  Age: 12 Year
  Sex: Male

DRUGS (2)
  1. TISAGENLECLEUCEL [Suspect]
     Active Substance: TISAGENLECLEUCEL
     Indication: Acute lymphocytic leukaemia recurrent
     Dosage: 3.4 X 10^6 CAR POSITIVE VIABLE T-CELLS PER KG
     Route: 065
  2. DASATINIB [Suspect]
     Active Substance: DASATINIB
     Indication: Product used for unknown indication
     Dosage: UNK
     Route: 065

REACTIONS (4)
  - Myelosuppression [Unknown]
  - Hyperleukocytosis [Unknown]
  - Metastases to testicle [Unknown]
  - Acute lymphocytic leukaemia recurrent [Unknown]
